FAERS Safety Report 13863408 (Version 12)
Quarter: 2021Q2

REPORT INFORMATION
  Report Type: Spontaneous
  Country: US (occurrence: US)
  Receive Date: 20170814
  Receipt Date: 20210507
  Transmission Date: 20210716
  Serious: Yes (Other)
  Sender: FDA-Public Use
  Company Number: US-PFIZER INC-2017346433

PATIENT
  Age: 68 Year
  Sex: Female
  Weight: 56.69 kg

DRUGS (4)
  1. LEVOTHYROXINE. [Concomitant]
     Active Substance: LEVOTHYROXINE
     Dosage: 75 MG, 1X/DAY (TAKEN IN AM AT BREAKFAST)
  2. ESTRADIOL. [Concomitant]
     Active Substance: ESTRADIOL
     Dosage: 1 MG, 1X/DAY
  3. XELJANZ XR [Suspect]
     Active Substance: TOFACITINIB CITRATE
     Indication: RHEUMATOID ARTHRITIS
     Dosage: 11 MG, 1X/DAY
     Route: 048
     Dates: start: 2017
  4. MEDROXYPROGESTERONE [Concomitant]
     Active Substance: MEDROXYPROGESTERONE
     Dosage: 5 MG, 1X/DAY (TAKEN IN AM AT BREAKFAST)

REACTIONS (6)
  - Drug ineffective [Unknown]
  - Diverticulitis [Unknown]
  - Critical illness [Unknown]
  - Poor quality product administered [Unknown]
  - Product residue present [Not Recovered/Not Resolved]
  - Product physical issue [Unknown]
